FAERS Safety Report 5380198-1 (Version None)
Quarter: 2007Q3

REPORT INFORMATION
  Report Type: 
  Country: None (occurrence: None)
  Receive Date: 20070706
  Receipt Date: 20070510
  Transmission Date: 20080115
  Serious: No
  Sender: FDA-Public Use
  Company Number: A0650803A

PATIENT
  Age: 44 Year
  Sex: Female

DRUGS (10)
  1. TYKERB [Suspect]
     Indication: BREAST CANCER
     Dosage: 5TAB PER DAY
     Route: 048
     Dates: start: 20070418
  2. XELODA [Concomitant]
  3. REGLAN [Concomitant]
  4. XANAX [Concomitant]
  5. EFFEXOR [Concomitant]
  6. PREVACID [Concomitant]
  7. HYDROCODONE BITARTRATE [Concomitant]
  8. HYDROCHLOROTHIAZIDE [Concomitant]
  9. PLAQUENIL [Concomitant]
  10. GABAPENTIN [Concomitant]

REACTIONS (2)
  - DERMATITIS ACNEIFORM [None]
  - NAUSEA [None]
